FAERS Safety Report 18046593 (Version 1)
Quarter: 2020Q3

REPORT INFORMATION
  Report Type: Spontaneous
  Country: CA (occurrence: CA)
  Receive Date: 20200720
  Receipt Date: 20200720
  Transmission Date: 20201103
  Serious: Yes (Hospitalization)
  Sender: FDA-Public Use
  Company Number: CA-TEVA-2020-CA-1801693

PATIENT
  Age: 58 Year
  Sex: Female
  Weight: 69 kg

DRUGS (24)
  1. AMLODIPINE [Concomitant]
     Active Substance: AMLODIPINE BESYLATE
  2. ASAPHEN [Concomitant]
     Active Substance: ASPIRIN
  3. ROSUVASTATIN. [Concomitant]
     Active Substance: ROSUVASTATIN
  4. INSULIN [Concomitant]
     Active Substance: INSULIN NOS
  5. MYRBETRIQ [Concomitant]
     Active Substance: MIRABEGRON
  6. TEVA?CEPHALEXIN [Suspect]
     Active Substance: CEPHALEXIN
     Indication: INFECTION
     Route: 048
  7. DENOSUMAB [Concomitant]
     Active Substance: DENOSUMAB
  8. APO?ARIPIPRAZOLE [Suspect]
     Active Substance: ARIPIPRAZOLE
     Indication: DEPRESSION
     Route: 048
  9. CANDESARTAN CILEXETIL. [Concomitant]
     Active Substance: CANDESARTAN CILEXETIL
  10. EZETIMIBE. [Concomitant]
     Active Substance: EZETIMIBE
  11. PREGABALIN. [Concomitant]
     Active Substance: PREGABALIN
  12. RABEPRAZOLE [Concomitant]
     Active Substance: RABEPRAZOLE
  13. BRILINTA [Concomitant]
     Active Substance: TICAGRELOR
  14. DULOXETINE. [Concomitant]
     Active Substance: DULOXETINE
  15. PIPERACILLIN AND TAZOBACTAM [Concomitant]
     Active Substance: PIPERACILLIN SODIUM\TAZOBACTAM SODIUM
  16. ARIPIPRAZOLE. [Concomitant]
     Active Substance: ARIPIPRAZOLE
  17. CHOLECALCIFEROL [Concomitant]
     Active Substance: CHOLECALCIFEROL
  18. HYDROMORPHONE [Concomitant]
     Active Substance: HYDROMORPHONE
  19. AMITRIPTYLINE [Concomitant]
     Active Substance: AMITRIPTYLINE
  20. CYANOCOBALAMIN. [Concomitant]
     Active Substance: CYANOCOBALAMIN
  21. PIPERACILLIN SODIUM W/TAZOBACTAM SODIUM POWDER FOR INJECTION [Suspect]
     Active Substance: PIPERACILLIN SODIUM\TAZOBACTAM SODIUM
     Indication: INFECTION
     Route: 042
  22. ESTRADIOL. [Concomitant]
     Active Substance: ESTRADIOL
  23. JARDIANCE [Concomitant]
     Active Substance: EMPAGLIFLOZIN
  24. NITROGLYCERIN. [Concomitant]
     Active Substance: NITROGLYCERIN

REACTIONS (5)
  - Pulmonary oedema [Recovering/Resolving]
  - Stevens-Johnson syndrome [Recovering/Resolving]
  - Toxic epidermal necrolysis [Recovering/Resolving]
  - Hepatitis [Recovering/Resolving]
  - Pneumonitis [Recovering/Resolving]
